FAERS Safety Report 17825236 (Version 2)
Quarter: 2021Q2

REPORT INFORMATION
  Report Type: Spontaneous
  Country: US (occurrence: US)
  Receive Date: 20200526
  Receipt Date: 20210603
  Transmission Date: 20210717
  Serious: Yes (Death, Other)
  Sender: FDA-Public Use
  Company Number: US-SA-2020SA134107

PATIENT
  Sex: Male

DRUGS (1)
  1. ZANTAC 75 [Suspect]
     Active Substance: RANITIDINE HYDROCHLORIDE
     Dosage: 150 MG; ONCE OR TWICE DAILY
     Dates: start: 20010101, end: 201009

REACTIONS (6)
  - Anxiety [Unknown]
  - Emotional distress [Unknown]
  - Injury [Unknown]
  - Pain [Unknown]
  - Metastatic carcinoma of the bladder [Fatal]
  - Impaired quality of life [Unknown]

NARRATIVE: CASE EVENT DATE: 20170401
